FAERS Safety Report 5108289-0 (Version None)
Quarter: 2006Q3

REPORT INFORMATION
  Report Type: 
  Country: None (occurrence: None)
  Receive Date: 20060914
  Receipt Date: 20060914
  Transmission Date: 20061208
  Serious: Yes (Other)
  Sender: FDA-Public Use
  Company Number: None

PATIENT
  Age: 83 Year
  Sex: Male
  Weight: 65.318 kg

DRUGS (9)
  1. LISINOPRIL [Suspect]
     Indication: CORONARY ARTERY DISEASE
     Dosage: 5 MG DAILY - ORAL
     Route: 048
     Dates: start: 20060314, end: 20060317
  2. LISINOPRIL [Suspect]
     Indication: HYPERTENSION
     Dosage: 5 MG DAILY - ORAL
     Route: 048
     Dates: start: 20060314, end: 20060317
  3. RANITIDINE [Concomitant]
  4. TAMSULOSIN HCL [Concomitant]
  5. SIMVASTATIN [Concomitant]
  6. ASPIRIN [Concomitant]
  7. DOCUSATE [Concomitant]
  8. BISACODYL [Concomitant]
  9. METOPROLOL [Concomitant]

REACTIONS (1)
  - COUGH [None]
